FAERS Safety Report 7444678-7 (Version None)
Quarter: 2011Q2

REPORT INFORMATION
  Report Type: 
  Country: None (occurrence: None)
  Receive Date: 20110426
  Receipt Date: 20110426
  Transmission Date: 20111010
  Serious: Yes (Other)
  Sender: FDA-Public Use
  Company Number: None

PATIENT
  Sex: Female

DRUGS (2)
  1. MORPHINE [Suspect]
     Dosage: 1 PO Q 8 ? 1
  2. METHADONE HCL [Suspect]
     Dosage: 1 PO TID

REACTIONS (2)
  - HALLUCINATION [None]
  - FLUSHING [None]
